FAERS Safety Report 6437274-1 (Version None)
Quarter: 2009Q4

REPORT INFORMATION
  Report Type: 
  Country: None (occurrence: None)
  Receive Date: 20091112
  Receipt Date: 20091105
  Transmission Date: 20100525
  Serious: Yes (Other)
  Sender: FDA-Public Use
  Company Number: GB-BRISTOL-MYERS SQUIBB COMPANY-14849111

PATIENT
  Sex: Male

DRUGS (1)
  1. BUSPAR [Suspect]
     Dates: start: 20090701

REACTIONS (1)
  - ANGLE CLOSURE GLAUCOMA [None]
